FAERS Safety Report 19258030 (Version 1)
Quarter: 2021Q2

REPORT INFORMATION
  Report Type: Spontaneous
  Country: IR (occurrence: IR)
  Receive Date: 20210514
  Receipt Date: 20210514
  Transmission Date: 20210717
  Serious: Yes (Other)
  Sender: FDA-Public Use
  Company Number: IR-GILEAD-2021-0528049

PATIENT
  Age: 30 Year
  Sex: Female

DRUGS (6)
  1. INTERFERON BETA NOS [Concomitant]
     Active Substance: INTERFERON BETA
  2. HYDROCORTISONE. [Concomitant]
     Active Substance: HYDROCORTISONE
  3. CYTOSAR [Concomitant]
     Active Substance: CYTARABINE
  4. SOVALDI [Suspect]
     Active Substance: SOFOSBUVIR
     Indication: COVID-19
     Route: 065
  5. INFLIXIMAB [Concomitant]
     Active Substance: INFLIXIMAB
  6. ADRIAMYCIN [Concomitant]
     Active Substance: DOXORUBICIN HYDROCHLORIDE

REACTIONS (3)
  - Maternal exposure during pregnancy [Recovered/Resolved]
  - Caesarean section [Recovered/Resolved]
  - Off label use [Unknown]

NARRATIVE: CASE EVENT DATE: 20200706
